FAERS Safety Report 11769874 (Version 2)
Quarter: 2015Q4

REPORT INFORMATION
  Report Type: Spontaneous
  Country: None (occurrence: US)
  Receive Date: 20151123
  Receipt Date: 20151203
  Transmission Date: 20160304
  Serious: No
  Sender: FDA-Public Use
  Company Number: US-MATRIXX INITIATIVES, INC.-1044544

PATIENT
  Age: 37 Year
  Sex: Female
  Weight: 87.73 kg

DRUGS (2)
  1. UNSPECIFIED VITAMINS [Concomitant]
     Active Substance: VITAMINS
  2. ZICAM COLD REMEDY RAPIDMELTS [Suspect]
     Active Substance: ZINC ACETATE ANHYDROUS\ZINC GLUCONATE
     Indication: NASOPHARYNGITIS
     Route: 048
     Dates: start: 20151114, end: 20151114

REACTIONS (2)
  - Anosmia [Recovering/Resolving]
  - Dysgeusia [Recovering/Resolving]
